FAERS Safety Report 6857378-9 (Version None)
Quarter: 2010Q3

REPORT INFORMATION
  Report Type: 
  Country: None (occurrence: None)
  Receive Date: 20100719
  Receipt Date: 20100707
  Transmission Date: 20110219
  Serious: Yes (Hospitalization, Other)
  Sender: FDA-Public Use
  Company Number: GB-BAUSCH-2010BL003662

PATIENT
  Age: 21 Year
  Sex: Female

DRUGS (1)
  1. MINIMS PROXYMETACAINE 0.5% [Suspect]
     Indication: LOCAL ANAESTHESIA
     Route: 047
     Dates: start: 20100607, end: 20100607

REACTIONS (4)
  - CHEST DISCOMFORT [None]
  - PARAESTHESIA [None]
  - RASH [None]
  - TREMOR [None]
